FAERS Safety Report 7249336-X (Version None)
Quarter: 2011Q1

REPORT INFORMATION
  Report Type: 
  Country: None (occurrence: None)
  Receive Date: 20110128
  Receipt Date: 20101129
  Transmission Date: 20110831
  Serious: Yes (Hospitalization, Other)
  Sender: FDA-Public Use
  Company Number: US-BAYER-201035891NA

PATIENT
  Sex: Female
  Weight: 105 kg

DRUGS (6)
  1. AMITRIPTYLINE HCL [Concomitant]
     Dosage: 25 MG, QD
  2. ZYRTEC [Concomitant]
  3. PERCOCET [Concomitant]
  4. HEPARIN [Concomitant]
  5. YAZ [Suspect]
     Indication: ORAL CONTRACEPTION
     Route: 048
     Dates: start: 20070601
  6. LOVENOX [Concomitant]

REACTIONS (12)
  - DYSPNOEA [None]
  - LIMB DISCOMFORT [None]
  - CHOLECYSTITIS ACUTE [None]
  - CHEST DISCOMFORT [None]
  - DEEP VEIN THROMBOSIS [None]
  - PULMONARY EMBOLISM [None]
  - PAIN IN EXTREMITY [None]
  - LIMB INJURY [None]
  - OEDEMA PERIPHERAL [None]
  - CHOLELITHIASIS [None]
  - PAIN [None]
  - BILIARY COLIC [None]
